FAERS Safety Report 5563947-9 (Version None)
Quarter: 2007Q4

REPORT INFORMATION
  Report Type: 
  Country: None (occurrence: None)
  Receive Date: 20071217
  Receipt Date: 20071022
  Transmission Date: 20080405
  Serious: Yes (Hospitalization, Other)
  Sender: FDA-Public Use
  Company Number: US-PURDUE-USA_2007_0030197

PATIENT
  Sex: Male

DRUGS (3)
  1. KLONOPIN [Concomitant]
     Indication: DRUG USE FOR UNKNOWN INDICATION
     Dosage: UNK, PRN
     Route: 048
  2. ANTIBIOTICS [Concomitant]
     Indication: DRUG USE FOR UNKNOWN INDICATION
     Dosage: UNK, UNK
  3. OXYCONTIN [Suspect]
     Indication: PAIN
     Dosage: 20 MG, BID
     Route: 048
     Dates: start: 20000504, end: 20010101

REACTIONS (34)
  - ABDOMINAL PAIN UPPER [None]
  - ABNORMAL BEHAVIOUR [None]
  - AMNESIA [None]
  - ANOREXIA [None]
  - ANXIETY [None]
  - ARTHRALGIA [None]
  - ARTHRITIS [None]
  - ASTHENIA [None]
  - CHILLS [None]
  - COLD SWEAT [None]
  - DIARRHOEA [None]
  - DIZZINESS [None]
  - DRUG ABUSE [None]
  - DRUG DEPENDENCE [None]
  - DRUG WITHDRAWAL SYNDROME [None]
  - EUPHORIC MOOD [None]
  - GENERAL PHYSICAL HEALTH DETERIORATION [None]
  - HEPATIC FAILURE [None]
  - HEPATITIS C [None]
  - INSOMNIA [None]
  - JOINT INJURY [None]
  - JOINT STIFFNESS [None]
  - MALAISE [None]
  - MENTAL DISORDER [None]
  - MYOCARDIAL INFARCTION [None]
  - NAUSEA [None]
  - NIGHT SWEATS [None]
  - PAIN [None]
  - PANIC ATTACK [None]
  - PILOERECTION [None]
  - SOMNOLENCE [None]
  - VISUAL DISTURBANCE [None]
  - VOMITING [None]
  - WEIGHT DECREASED [None]
